FAERS Safety Report 6493338-8 (Version None)
Quarter: 2009Q4

REPORT INFORMATION
  Report Type: 
  Country: None (occurrence: None)
  Receive Date: 20091214
  Receipt Date: 20091203
  Transmission Date: 20100525
  Serious: Yes (Other)
  Sender: FDA-Public Use
  Company Number: US-MYLANLABS-2009S1020857

PATIENT
  Age: 81 Year
  Sex: Female
  Weight: 56.7 kg

DRUGS (10)
  1. FENTANYL CITRATE [Suspect]
     Indication: BACK PAIN
     Dosage: Q72HR
     Route: 062
     Dates: start: 20080301, end: 20090501
  2. FENTANYL CITRATE [Suspect]
     Dosage: Q72HR
     Route: 062
     Dates: start: 20090501, end: 20090801
  3. LEVOTHYROXINE SODIUM [Concomitant]
     Route: 048
  4. PROTONIX [Concomitant]
     Route: 048
  5. RITALIN [Concomitant]
     Route: 048
     Dates: start: 20090501, end: 20090601
  6. DIOVAN [Concomitant]
     Route: 048
  7. AMLODIPINE [Concomitant]
     Route: 048
  8. SPIRONOLACTONE [Concomitant]
     Route: 048
  9. GABAPENTIN [Concomitant]
     Route: 048
  10. PAXIL [Concomitant]
     Route: 048

REACTIONS (4)
  - DECREASED APPETITE [None]
  - FALL [None]
  - SPINAL COMPRESSION FRACTURE [None]
  - TREMOR [None]
